FAERS Safety Report 10704523 (Version 1)
Quarter: 2014Q4

REPORT INFORMATION
  Report Type: Report from Study
  Country: US (occurrence: None)
  Receive Date: 20141224
  Receipt Date: 20141224
  Transmission Date: 20150529
  Serious: No
  Sender: FDA-Public Use
  Company Number: CABO-14004764

PATIENT
  Age: 73 Year
  Sex: Male

DRUGS (15)
  1. CLONAZEPAM (CLONAZEPAM) [Concomitant]
     Active Substance: CLONAZEPAM
  2. AMBIEN [Concomitant]
     Active Substance: ZOLPIDEM TARTRATE
  3. WARFARIN (WARFARIN) [Concomitant]
     Active Substance: WARFARIN
  4. PRILOSEC (OMEPRAZOLE) [Concomitant]
     Active Substance: OMEPRAZOLE MAGNESIUM
  5. VITAMINS NOS (VITAMINS NOS) [Concomitant]
     Active Substance: VITAMINS
  6. CALCIUM D (ASCORBIC ACID, CALCIUM GLUCONATE, CALCIUM LACTATE, CALCIUM PHOSPHATE DIBASIC, ERGOCALCIFEROL) [Concomitant]
  7. FENOFIBRATE (FENOFIBRATE) [Concomitant]
  8. HYDROCODONE (HYDROCODONE) [Concomitant]
     Active Substance: HYDROCODONE
  9. LEVOTHYROXINE (LEVOTHYROXINE) [Concomitant]
     Active Substance: LEVOTHYROXINE
  10. NIACIN (NICOTINIC ACID) [Concomitant]
  11. COMETRIQ [Suspect]
     Active Substance: CABOZANTINIB S-MALATE
     Indication: THYROID CANCER
     Route: 048
     Dates: start: 20140905, end: 20140919
  12. ASPIRIN (ACETYLSALICYLIC ACID) [Concomitant]
     Active Substance: ASPIRIN
  13. CLARITIN [Concomitant]
     Active Substance: LORATADINE
  14. LOSARTAN (LOSARTAN) [Concomitant]
     Active Substance: LOSARTAN
  15. ATORVASTATIN (ATORVASTATIN) [Concomitant]
     Active Substance: ATORVASTATIN

REACTIONS (4)
  - Fatigue [None]
  - Gingival pain [None]
  - Glossodynia [None]
  - Diarrhoea [None]

NARRATIVE: CASE EVENT DATE: 201409
